FAERS Safety Report 24055250 (Version 1)
Quarter: 2024Q3

REPORT INFORMATION
  Report Type: Spontaneous
  Country: US (occurrence: None)
  Receive Date: 20240705
  Receipt Date: 20240705
  Transmission Date: 20241016
  Serious: Yes (Hospitalization)
  Sender: ASTRAZENECA
  Company Number: 2024A153007

PATIENT
  Age: 94 Month
  Sex: Female
  Weight: 43.5 kg

DRUGS (1)
  1. SELUMETINIB [Suspect]
     Active Substance: SELUMETINIB
     Dosage: 1140.0MG UNKNOWN
     Route: 048
     Dates: start: 20240604

REACTIONS (1)
  - Nystagmus [Recovering/Resolving]

NARRATIVE: CASE EVENT DATE: 20240623
